FAERS Safety Report 6473339-6 (Version None)
Quarter: 2009Q4

REPORT INFORMATION
  Report Type: 
  Country: None (occurrence: None)
  Receive Date: 20091204
  Receipt Date: 20081212
  Transmission Date: 20100525
  Serious: Yes (Death)
  Sender: FDA-Public Use
  Company Number: JP-ELI_LILLY_AND_COMPANY-JP200810000299

PATIENT
  Sex: Male
  Weight: 65 kg

DRUGS (2)
  1. GEMZAR [Suspect]
     Indication: PANCREATIC CARCINOMA STAGE IV
     Dosage: 700 MG, WEEKLY
     Route: 042
     Dates: start: 20080924, end: 20081107
  2. URSO 250 [Concomitant]
     Indication: CHOLESTASIS
     Dosage: 100 MG, 3/D
     Route: 048
     Dates: start: 20080910, end: 20081127

REACTIONS (3)
  - CONSTIPATION [None]
  - SHOCK [None]
  - URINARY RETENTION [None]
